FAERS Safety Report 6409779-0 (Version None)
Quarter: 2009Q4

REPORT INFORMATION
  Report Type: 
  Country: None (occurrence: None)
  Receive Date: 20091021
  Receipt Date: 20091021
  Transmission Date: 20100525
  Serious: Yes (Hospitalization)
  Sender: FDA-Public Use
  Company Number: None

PATIENT
  Sex: Male
  Weight: 86 kg

DRUGS (2)
  1. CARBOPLATIN [Suspect]
     Dosage: 1270 MG
  2. PACLITAXEL [Suspect]
     Dosage: 450 MG

REACTIONS (2)
  - NEUTROPENIA [None]
  - PNEUMONIA [None]
